FAERS Safety Report 8561577-8 (Version None)
Quarter: 2012Q3

REPORT INFORMATION
  Report Type: 
  Country: None (occurrence: None)
  Receive Date: 20120802
  Receipt Date: 20120720
  Transmission Date: 20120928
  Serious: No
  Sender: FDA-Public Use
  Company Number: US-ASTRAZENECA-2012SE51211

PATIENT
  Age: 58 Year
  Sex: Female
  Weight: 81.6 kg

DRUGS (3)
  1. NEXIUM [Suspect]
     Indication: OESOPHAGEAL DISORDER
     Route: 048
     Dates: start: 20100101, end: 20111201
  2. NEXIUM [Suspect]
     Dosage: FOUR TIMES PER WEEK
     Route: 048
     Dates: start: 20120101
  3. PRILOSEC OTC [Suspect]
     Indication: OESOPHAGEAL DISORDER
     Route: 048

REACTIONS (8)
  - UPPER RESPIRATORY TRACT CONGESTION [None]
  - DRUG INEFFECTIVE [None]
  - THROAT IRRITATION [None]
  - OFF LABEL USE [None]
  - INTENTIONAL DRUG MISUSE [None]
  - DRUG DOSE OMISSION [None]
  - THROAT TIGHTNESS [None]
  - DYSPHONIA [None]
